FAERS Safety Report 21263897 (Version 6)
Quarter: 2023Q2

REPORT INFORMATION
  Report Type: Spontaneous
  Country: US (occurrence: US)
  Receive Date: 20220829
  Receipt Date: 20230614
  Transmission Date: 20230721
  Serious: Yes (Other)
  Sender: FDA-Public Use
  Company Number: US-BIOCODEX2-2022001092

PATIENT
  Age: 8 Year
  Sex: Male
  Weight: 24 kg

DRUGS (9)
  1. DIACOMIT [Suspect]
     Active Substance: STIRIPENTOL
     Indication: Severe myoclonic epilepsy of infancy
     Dosage: 500MG (TWO CAPSULES) BY MOUTH TWICE DAILY
     Route: 048
     Dates: start: 20220519
  2. DIACOMIT [Suspect]
     Active Substance: STIRIPENTOL
     Indication: Severe myoclonic epilepsy of infancy
     Dosage: 750MG BY MOUTH TWICE DAILY
     Route: 048
     Dates: start: 20220519
  3. CLOBAZAM [Concomitant]
     Active Substance: CLOBAZAM
     Indication: Severe myoclonic epilepsy of infancy
     Dosage: 10 ML A DAY
     Route: 048
     Dates: start: 20210911
  4. EPIDIOLEX [Concomitant]
     Active Substance: CANNABIDIOL
     Indication: Product used for unknown indication
     Dosage: 6 ML AT DAY
     Route: 048
     Dates: start: 20211210
  5. EPIDIOLEX [Concomitant]
     Active Substance: CANNABIDIOL
     Indication: Product used for unknown indication
     Dosage: 3.5 ML TWICE A DAY
     Route: 048
     Dates: start: 20221210
  6. KEPPRA [Concomitant]
     Active Substance: LEVETIRACETAM
     Indication: Product used for unknown indication
     Dosage: 11 ML AT DAY
     Route: 048
     Dates: start: 20191101
  7. KEPPRA [Concomitant]
     Active Substance: LEVETIRACETAM
     Indication: Product used for unknown indication
     Dosage: 3ML AM,3 NOON, 2.5 PM
     Route: 048
     Dates: start: 20191113
  8. PHENOBARBITAL [Concomitant]
     Active Substance: PHENOBARBITAL
     Indication: Product used for unknown indication
     Dosage: ? TABLET AT DAY, DECREASED DOSE
     Route: 048
     Dates: start: 20191001
  9. PHENOBARBITAL [Concomitant]
     Active Substance: PHENOBARBITAL
     Indication: Product used for unknown indication
     Dosage: ? TABLET AT BEDTIME
     Route: 048
     Dates: start: 201910

REACTIONS (5)
  - Seizure [Recovered/Resolved]
  - Pyrexia [Unknown]
  - Infection [Not Recovered/Not Resolved]
  - Irritability [Recovered/Resolved]
  - Somnolence [Recovered/Resolved]

NARRATIVE: CASE EVENT DATE: 20220101
